FAERS Safety Report 13842921 (Version 5)
Quarter: 2018Q1

REPORT INFORMATION
  Report Type: Spontaneous
  Country: IT (occurrence: IT)
  Receive Date: 20170808
  Receipt Date: 20180323
  Transmission Date: 20180508
  Serious: Yes (Hospitalization)
  Sender: FDA-Public Use
  Company Number: IT-SUN PHARMACEUTICAL INDUSTRIES LTD-2017RR-147105

PATIENT
  Age: 61 Year
  Sex: Female

DRUGS (7)
  1. LORAZEPAM. [Suspect]
     Active Substance: LORAZEPAM
     Dosage: 2.5 MG, ONCE DAILY (QD)
  2. TALOFEN 4 G/100 ML [Suspect]
     Active Substance: PROMAZINE HYDROCHLORIDE
     Indication: PRODUCT USED FOR UNKNOWN INDICATION
     Dosage: 90 ML TOTAL
     Route: 048
  3. EUTIROX [Suspect]
     Active Substance: LEVOTHYROXINE SODIUM
     Indication: PRODUCT USED FOR UNKNOWN INDICATION
     Dosage: 3375 MG TOTAL
     Route: 048
     Dates: start: 20170629, end: 20170629
  4. TALOFEN 4 G/100 ML [Suspect]
     Active Substance: PROMAZINE HYDROCHLORIDE
     Dosage: 60 GTT, UNK
  5. LORAZEPAM. [Suspect]
     Active Substance: LORAZEPAM
     Indication: PRODUCT USED FOR UNKNOWN INDICATION
     Dosage: 125 MG TOTAL
     Route: 048
     Dates: start: 20170629, end: 20170629
  6. VENLAFAXINE [Suspect]
     Active Substance: VENLAFAXINE HYDROCHLORIDE
     Indication: PRODUCT USED FOR UNKNOWN INDICATION
     Dosage: 1650 MG TOTAL
     Route: 048
     Dates: start: 20170629, end: 20170629
  7. ALCOHOL. [Interacting]
     Active Substance: ALCOHOL
     Indication: PRODUCT USED FOR UNKNOWN INDICATION
     Dosage: WINE ()
     Route: 065
     Dates: start: 20170629, end: 20170629

REACTIONS (4)
  - Drug abuse [Recovered/Resolved]
  - Alcohol interaction [Recovered/Resolved]
  - Intentional self-injury [Recovered/Resolved]
  - Slow speech [Recovered/Resolved]

NARRATIVE: CASE EVENT DATE: 20170630
